FAERS Safety Report 16997416 (Version 1)
Quarter: 2019Q4

REPORT INFORMATION
  Report Type: Spontaneous
  Country: US (occurrence: US)
  Receive Date: 20191105
  Receipt Date: 20191105
  Transmission Date: 20200122
  Serious: Yes (Other)
  Sender: FDA-Public Use
  Company Number: None

PATIENT
  Age: 32 Year
  Sex: Female
  Weight: 49.44 kg

DRUGS (2)
  1. DOXYCYCLINE. [Concomitant]
     Active Substance: DOXYCYCLINE
     Dates: start: 20190515, end: 20190815
  2. PARAGARD T 380A [Suspect]
     Active Substance: COPPER

REACTIONS (15)
  - Insomnia [None]
  - Vision blurred [None]
  - Pelvic pain [None]
  - Menorrhagia [None]
  - Palpitations [None]
  - Toxicity to various agents [None]
  - Feeling abnormal [None]
  - Rash [None]
  - Dyspnoea [None]
  - Anxiety [None]
  - Complication associated with device [None]
  - Panic reaction [None]
  - Abdominal pain [None]
  - Alopecia [None]
  - Cardiac murmur [None]

NARRATIVE: CASE EVENT DATE: 20190913
